FAERS Safety Report 19955040 (Version 1)
Quarter: 2021Q4

REPORT INFORMATION
  Report Type: Spontaneous
  Country: US (occurrence: US)
  Receive Date: 20211014
  Receipt Date: 20211014
  Transmission Date: 20220303
  Serious: Yes (Other)
  Sender: FDA-Public Use
  Company Number: US-PFIZER INC-202101311521

PATIENT
  Age: 65 Year
  Sex: Male
  Weight: 172.36 kg

DRUGS (1)
  1. CHANTIX [Suspect]
     Active Substance: VARENICLINE TARTRATE
     Indication: Smoking cessation therapy
     Dosage: 1 MG, 2X/DAY
     Dates: start: 2019, end: 202102

REACTIONS (1)
  - Lung carcinoma cell type unspecified stage I [Unknown]

NARRATIVE: CASE EVENT DATE: 20200101
